FAERS Safety Report 6031940-8 (Version None)
Quarter: 2008Q4

REPORT INFORMATION
  Report Type: 
  Country: None (occurrence: None)
  Receive Date: 20081231
  Receipt Date: 20080915
  Transmission Date: 20090506
  Serious: Yes (Other)
  Sender: FDA-Public Use
  Company Number: 177610USA

PATIENT

DRUGS (1)
  1. LAMOTRIGINE [Suspect]
     Dosage: (100 MG)

REACTIONS (2)
  - CONVULSION [None]
  - DRUG INEFFECTIVE [None]
